FAERS Safety Report 5747572-2 (Version None)
Quarter: 2008Q2

REPORT INFORMATION
  Report Type: 
  Country: None (occurrence: None)
  Receive Date: 20080523
  Receipt Date: 20080519
  Transmission Date: 20081010
  Serious: Yes (Other)
  Sender: FDA-Public Use
  Company Number: US-GENENTECH-260745

PATIENT
  Sex: Male

DRUGS (2)
  1. LUCENTIS [Suspect]
     Indication: MACULAR DEGENERATION
     Dosage: 0.05 ML, SINGLE
     Route: 031
     Dates: start: 20070920
  2. LUCENTIS [Suspect]
     Dosage: UNK, X3
     Route: 031

REACTIONS (1)
  - HEPATIC NEOPLASM MALIGNANT RECURRENT [None]
